FAERS Safety Report 5226511-7 (Version None)
Quarter: 2007Q1

REPORT INFORMATION
  Report Type: 
  Country: None (occurrence: None)
  Receive Date: 20070201
  Receipt Date: 20070112
  Transmission Date: 20070707
  Serious: Yes (Hospitalization, Disabling, Other)
  Sender: FDA-Public Use
  Company Number: FR-PFIZER INC-2006152150

PATIENT
  Age: 12 Year
  Sex: Female

DRUGS (1)
  1. GENOTONORM [Suspect]
     Indication: GROWTH HORMONE DEFICIENCY
     Dosage: DAILY DOSE:1MG-FREQ:EVERY 6/7 DAYS

REACTIONS (3)
  - HEADACHE [None]
  - NECK PAIN [None]
  - SINUSITIS [None]
